FAERS Safety Report 6596432-6 (Version None)
Quarter: 2010Q1

REPORT INFORMATION
  Report Type: 
  Country: None (occurrence: None)
  Receive Date: 20100222
  Receipt Date: 20100222
  Transmission Date: 20100710
  Serious: Yes (Hospitalization)
  Sender: FDA-Public Use
  Company Number: None

PATIENT
  Sex: Female
  Weight: 83.4619 kg

DRUGS (1)
  1. FOSAMAX [Suspect]
     Indication: OSTEOPOROSIS
     Dosage: 70 MG PILL 1X A WEEK PO
     Route: 048
     Dates: start: 19960514, end: 20070912

REACTIONS (3)
  - FALL [None]
  - FEMUR FRACTURE [None]
  - PAIN IN EXTREMITY [None]
